FAERS Safety Report 16155412 (Version 1)
Quarter: 2019Q2

REPORT INFORMATION
  Report Type: Report from Study
  Country: None (occurrence: BR)
  Receive Date: 20190403
  Receipt Date: 20190403
  Transmission Date: 20190711
  Serious: Yes (Other)
  Sender: FDA-Public Use
  Company Number: BR-ABBVIE-19K-020-2730708-00

PATIENT
  Sex: Female

DRUGS (1)
  1. HUMIRA [Suspect]
     Active Substance: ADALIMUMAB
     Indication: RHEUMATOID ARTHRITIS
     Route: 058
     Dates: start: 20120430

REACTIONS (6)
  - Malaise [Unknown]
  - Somnolence [Unknown]
  - Tooth disorder [Unknown]
  - Stomatitis [Recovered/Resolved]
  - Dental operation [Unknown]
  - Surgical failure [Unknown]

NARRATIVE: CASE EVENT DATE: 2012
